FAERS Safety Report 20802847 (Version 1)
Quarter: 2022Q2

REPORT INFORMATION
  Report Type: Spontaneous
  Country: US (occurrence: None)
  Receive Date: 20220509
  Receipt Date: 20220509
  Transmission Date: 20220720
  Serious: Yes (Other)
  Sender: FDA-Public Use
  Company Number: None

PATIENT
  Age: 89 Year
  Sex: Male
  Weight: 72 kg

DRUGS (1)
  1. APIXABAN [Suspect]
     Active Substance: APIXABAN
     Indication: Atrial flutter
     Dosage: FREQUENCY : TWICE A DAY;?
     Route: 048
     Dates: end: 20220214

REACTIONS (8)
  - Haemoglobin decreased [None]
  - Gastrointestinal haemorrhage [None]
  - Cardiac failure congestive [None]
  - Therapy interrupted [None]
  - COVID-19 [None]
  - Cardiac arrest [None]
  - Haemoptysis [None]
  - Respiratory failure [None]

NARRATIVE: CASE EVENT DATE: 20220214
